FAERS Safety Report 16620736 (Version 3)
Quarter: 2019Q3

REPORT INFORMATION
  Report Type: Spontaneous
  Country: US (occurrence: US)
  Receive Date: 20190723
  Receipt Date: 20190731
  Transmission Date: 20191004
  Serious: No
  Sender: FDA-Public Use
  Company Number: US-B.I. PHARMACEUTICALS,INC./RIDGEFIELD-2019-US-000781

PATIENT
  Sex: Male

DRUGS (1)
  1. MIRAPEX [Suspect]
     Active Substance: PRAMIPEXOLE DIHYDROCHLORIDE
     Indication: PAIN IN EXTREMITY
     Dosage: 0.25MG DAILY
     Route: 065
     Dates: start: 2009

REACTIONS (7)
  - Dizziness [Recovered/Resolved]
  - Pain in extremity [Recovered/Resolved]
  - Dizziness [Recovered/Resolved]
  - Off label use [Unknown]
  - Therapeutic response unexpected [Unknown]
  - Nausea [Recovered/Resolved]
  - Malaise [Unknown]

NARRATIVE: CASE EVENT DATE: 2009
